FAERS Safety Report 6770466-0 (Version None)
Quarter: 2010Q2

REPORT INFORMATION
  Report Type: 
  Country: None (occurrence: None)
  Receive Date: 20100608
  Receipt Date: 20100527
  Transmission Date: 20101027
  Serious: Yes (Life-Threatening, Hospitalization)
  Sender: FDA-Public Use
  Company Number: CLOF-10714

PATIENT
  Age: 20 Year
  Sex: Female
  Weight: 64.5 kg

DRUGS (24)
  1. CLOFARABINE (CLOFARABINE) [Suspect]
     Indication: ACUTE LYMPHOCYTIC LEUKAEMIA
     Dosage: 75 MG, QDX5, INTRAVENOUS; 70 G, QD,MG, QDX5, INTRAVENOUS
     Route: 042
     Dates: start: 20071008, end: 20071012
  2. CLOFARABINE (CLOFARABINE) [Suspect]
     Indication: ACUTE LYMPHOCYTIC LEUKAEMIA
     Dosage: 75 MG, QDX5, INTRAVENOUS; 70 G, QD,MG, QDX5, INTRAVENOUS
     Route: 042
     Dates: start: 20071121, end: 20071124
  3. ETOPOSIDE [Suspect]
     Indication: ACUTE LYMPHOCYTIC LEUKAEMIA
     Dosage: 170 MG, QD, INTRAVENOUS; 190 MG, QDX5, INTRAVENOUS
     Route: 042
     Dates: start: 20071008, end: 20071012
  4. ETOPOSIDE [Suspect]
     Indication: ACUTE LYMPHOCYTIC LEUKAEMIA
     Dosage: 170 MG, QD, INTRAVENOUS; 190 MG, QDX5, INTRAVENOUS
     Route: 042
     Dates: start: 20071121, end: 20071124
  5. CYCLOPHOSPHAMIDE [Suspect]
     Indication: ACUTE LYMPHOCYTIC LEUKAEMIA
     Dosage: 750 MG, QD,INTRAVENOUS; 835 MG, QDX5, INTRAVENOUS
     Route: 042
     Dates: start: 20071008, end: 20071012
  6. CYCLOPHOSPHAMIDE [Suspect]
     Indication: ACUTE LYMPHOCYTIC LEUKAEMIA
     Dosage: 750 MG, QD,INTRAVENOUS; 835 MG, QDX5, INTRAVENOUS
     Route: 042
     Dates: start: 20071121, end: 20071124
  7. ZOSYN [Concomitant]
  8. TOBRAMYCIN [Concomitant]
  9. DIFLUCAN [Concomitant]
  10. ACYCLOVIR [Concomitant]
  11. NEUPOGEN (FILGRASTIM) [Concomitant]
  12. ALLOPURINOL [Concomitant]
  13. ZOFRAN [Concomitant]
  14. CIPRO [Concomitant]
  15. DESOGEN (DESOGESTREL, ETHINYLESTRADIOL) [Concomitant]
  16. PENTAMIDINE (PENTAMIDINE) [Concomitant]
  17. LORTAB [Concomitant]
  18. BENADRYL [Concomitant]
  19. NEUROTIN (ACETYLCARNITINE HYDROCHLORIDE) [Concomitant]
  20. AQUAPHOR (PETROLATUM) [Concomitant]
  21. ATIVAN [Concomitant]
  22. PHENERGAN (PROMETHAZINE) [Concomitant]
  23. AMBIEN [Concomitant]
  24. ACYCLOVIR [Concomitant]

REACTIONS (31)
  - ASPERGILLOSIS [None]
  - BACILLUS INFECTION [None]
  - BLOOD BICARBONATE DECREASED [None]
  - BLOOD BILIRUBIN INCREASED [None]
  - BLOOD MAGNESIUM DECREASED [None]
  - BLOOD SODIUM DECREASED [None]
  - CAECITIS [None]
  - CHOLELITHIASIS [None]
  - CULTURE URINE POSITIVE [None]
  - DEHYDRATION [None]
  - DIARRHOEA [None]
  - EMOTIONAL DISTRESS [None]
  - FEBRILE NEUTROPENIA [None]
  - HAEMATOCRIT DECREASED [None]
  - HAEMOGLOBIN DECREASED [None]
  - HEART RATE INCREASED [None]
  - HYPOKALAEMIA [None]
  - LACTOBACILLUS INFECTION [None]
  - PAIN IN EXTREMITY [None]
  - PANCREATITIS [None]
  - PELVIC FLUID COLLECTION [None]
  - PLATELET COUNT DECREASED [None]
  - PULMONARY MYCOSIS [None]
  - RED BLOOD CELL COUNT DECREASED [None]
  - RHABDOMYOLYSIS [None]
  - SEPTIC EMBOLUS [None]
  - SEPTIC SHOCK [None]
  - STAPHYLOCOCCAL INFECTION [None]
  - STAPHYLOCOCCAL SEPSIS [None]
  - STREPTOCOCCAL BACTERAEMIA [None]
  - WEIGHT DECREASED [None]
